FAERS Safety Report 5894994-5 (Version None)
Quarter: 2008Q3

REPORT INFORMATION
  Report Type: 
  Country: None (occurrence: None)
  Receive Date: 20080922
  Receipt Date: 20080910
  Transmission Date: 20090109
  Serious: Yes (Death, Other)
  Sender: FDA-Public Use
  Company Number: 2008-00244

PATIENT
  Age: 64 Year
  Sex: Male
  Weight: 55 kg

DRUGS (12)
  1. VELCADE [Suspect]
     Indication: MULTIPLE MYELOMA
     Dosage: 1.6 MG, UNK, INTRAVENOUS, 2.1 MG, UNK, INTRAVENOUS
     Route: 042
     Dates: start: 20070504, end: 20070907
  2. VELCADE [Suspect]
     Indication: MULTIPLE MYELOMA
     Dosage: 1.6 MG, UNK, INTRAVENOUS, 2.1 MG, UNK, INTRAVENOUS
     Route: 042
     Dates: start: 20061222, end: 20070908
  3. DEXAMETHASONE TAB [Suspect]
     Indication: MULTIPLE MYELOMA
     Dosage: 12 MG, UNK, ORAL, 8 MG, UNK, ORAL, 12 MG, UNK, ORAL
     Route: 048
     Dates: start: 20061222, end: 20070526
  4. DEXAMETHASONE TAB [Suspect]
     Indication: MULTIPLE MYELOMA
     Dosage: 12 MG, UNK, ORAL, 8 MG, UNK, ORAL, 12 MG, UNK, ORAL
     Route: 048
     Dates: start: 20070608, end: 20070804
  5. DEXAMETHASONE TAB [Suspect]
     Indication: MULTIPLE MYELOMA
     Dosage: 12 MG, UNK, ORAL, 8 MG, UNK, ORAL, 12 MG, UNK, ORAL
     Route: 048
     Dates: start: 20070817, end: 20070908
  6. PARIET (RABEPRAZOLE SODIUM) [Concomitant]
  7. LENDORM [Concomitant]
  8. DIFLUCAN [Concomitant]
  9. UBRETID (DISTIGMINE BROMIDE) [Concomitant]
  10. SULFAMETHOXAZOLE AND TRIMETHOPRIM [Concomitant]
  11. MAGNESIUM OXIDE (MAGNESIUM OXIDE) [Concomitant]
  12. NAIXAN  (NAPROXEN SODIUM) [Concomitant]

REACTIONS (8)
  - DIARRHOEA [None]
  - DISEASE PROGRESSION [None]
  - HAEMOGLOBIN DECREASED [None]
  - HYPOAESTHESIA [None]
  - LYMPHOCYTE COUNT DECREASED [None]
  - PNEUMONIA INFLUENZAL [None]
  - PYREXIA [None]
  - RENAL IMPAIRMENT [None]
